FAERS Safety Report 9206630 (Version 1)
Quarter: 2013Q2

REPORT INFORMATION
  Report Type: Spontaneous
  Country: BR (occurrence: BR)
  Receive Date: 20130403
  Receipt Date: 20130403
  Transmission Date: 20140414
  Serious: Yes (Other)
  Sender: FDA-Public Use
  Company Number: BR-SANOFI-AVENTIS-2013SA032045

PATIENT
  Age: 31 Year
  Sex: Male
  Weight: 65 kg

DRUGS (6)
  1. LANTUS [Suspect]
     Indication: TYPE 1 DIABETES MELLITUS
     Route: 058
     Dates: start: 2000
  2. CLIKSTAR [Concomitant]
     Indication: DEVICE THERAPY
     Dates: start: 201302
  3. DILTIAZEM HYDROCHLORIDE [Concomitant]
     Indication: ILL-DEFINED DISORDER
     Route: 048
     Dates: start: 2000
  4. MYFORTIC [Concomitant]
     Indication: LIVER TRANSPLANT
     Route: 048
     Dates: start: 2000
  5. PROGRAF [Concomitant]
     Indication: LIVER TRANSPLANT
     Route: 048
     Dates: start: 2000
  6. NOVORAPID [Concomitant]
     Indication: TYPE 1 DIABETES MELLITUS
     Dosage: FROM 4 TO 6 IU, ACCORDING TO CARBOHYRDRATE COUNTING
     Route: 058
     Dates: start: 201302

REACTIONS (1)
  - Multiple fractures [Recovering/Resolving]
